FAERS Safety Report 6231826-X (Version None)
Quarter: 2009Q2

REPORT INFORMATION
  Report Type: 
  Country: None (occurrence: None)
  Receive Date: 20090611
  Receipt Date: 20090611
  Transmission Date: 20091009
  Serious: Yes (Other)
  Sender: FDA-Public Use
  Company Number: None

PATIENT
  Sex: Male
  Weight: 109.1 kg

DRUGS (1)
  1. EMSAM 6 MG PATCH BRISTOL MYERS SQUIBB (PREVIOUSLY) [Suspect]
     Dosage: EMSAM PATCH 6 MG DAILY TRANSDERMAL
     Route: 062
     Dates: start: 20090201

REACTIONS (2)
  - PSYCHIATRIC DECOMPENSATION [None]
  - THERAPY CESSATION [None]
